FAERS Safety Report 26153852 (Version 2)
Quarter: 2025Q4

REPORT INFORMATION
  Report Type: Report from Study
  Country: JP (occurrence: JP)
  Receive Date: 20251214
  Receipt Date: 20251218
  Transmission Date: 20260117
  Serious: Yes (Death, Life-Threatening, Other)
  Sender: TAKEDA
  Company Number: JP-TAKEDA-2025TJP012709

PATIENT
  Age: 64 Year
  Sex: Male

DRUGS (1)
  1. FRUQUINTINIB [Suspect]
     Active Substance: FRUQUINTINIB
     Indication: Colon cancer
     Dosage: 5 MILLIGRAM
     Dates: start: 20250617, end: 20251006

REACTIONS (4)
  - Hepatic cirrhosis [Fatal]
  - Colon cancer [Fatal]
  - Venous injury [Not Recovered/Not Resolved]
  - Oesophageal varices haemorrhage [Not Recovered/Not Resolved]

NARRATIVE: CASE EVENT DATE: 20251010
